FAERS Safety Report 5580400-7 (Version None)
Quarter: 2008Q1

REPORT INFORMATION
  Report Type: 
  Country: None (occurrence: None)
  Receive Date: 20080103
  Receipt Date: 20071228
  Transmission Date: 20080703
  Serious: Yes (Other)
  Sender: FDA-Public Use
  Company Number: US-MERCK-0712USA09277

PATIENT
  Age: 56 Year
  Sex: Male

DRUGS (3)
  1. VYTORIN [Suspect]
     Indication: BLOOD CHOLESTEROL
     Route: 048
     Dates: start: 20060101
  2. ASPIRIN [Concomitant]
     Route: 065
  3. PROTONIX [Concomitant]
     Route: 065

REACTIONS (3)
  - COLON CANCER [None]
  - HYPOAESTHESIA ORAL [None]
  - PARAESTHESIA ORAL [None]
